FAERS Safety Report 25196378 (Version 1)
Quarter: 2025Q2

REPORT INFORMATION
  Report Type: Report from Study
  Country: CA (occurrence: CA)
  Receive Date: 20250415
  Receipt Date: 20250415
  Transmission Date: 20250717
  Serious: Yes (Other)
  Sender: TAKEDA
  Company Number: CA-TAKEDA-2024TUS124381

PATIENT
  Sex: Male

DRUGS (9)
  1. VEDOLIZUMAB [Suspect]
     Active Substance: VEDOLIZUMAB
     Indication: Colitis ulcerative
  2. VEDOLIZUMAB [Suspect]
     Active Substance: VEDOLIZUMAB
  3. TESTOSTERONE [Concomitant]
     Active Substance: TESTOSTERONE
  4. RABEPRAZOLE [Concomitant]
     Active Substance: RABEPRAZOLE
  5. TRANDOLAPRIL [Concomitant]
     Active Substance: TRANDOLAPRIL
  6. CELEBREX [Concomitant]
     Active Substance: CELECOXIB
  7. TEMAZEPAM [Concomitant]
     Active Substance: TEMAZEPAM
  8. MESALAMINE [Concomitant]
     Active Substance: MESALAMINE
  9. NORTRIPTYLINE [Concomitant]
     Active Substance: NORTRIPTYLINE

REACTIONS (4)
  - Diverticulum intestinal [Recovering/Resolving]
  - Retching [Unknown]
  - Pyrexia [Unknown]
  - Nausea [Unknown]
